FAERS Safety Report 6232230-0 (Version None)
Quarter: 2009Q2

REPORT INFORMATION
  Report Type: 
  Country: None (occurrence: None)
  Receive Date: 20090616
  Receipt Date: 20090616
  Transmission Date: 20091009
  Serious: No
  Sender: FDA-Public Use
  Company Number: None

PATIENT
  Age: 54 Year
  Sex: Female
  Weight: 63.5 kg

DRUGS (2)
  1. GADOLINIUM [Suspect]
     Indication: NUCLEAR MAGNETIC RESONANCE IMAGING
     Dosage: 14ML X1 IV
     Route: 042
     Dates: start: 20090613
  2. GADOLINIUM [Suspect]
     Indication: SCAN WITH CONTRAST
     Dosage: 14ML X1 IV
     Route: 042
     Dates: start: 20090613

REACTIONS (2)
  - DYSPNOEA [None]
  - WHEEZING [None]
